FAERS Safety Report 9858453 (Version 1)
Quarter: 2014Q1

REPORT INFORMATION
  Report Type: Spontaneous
  Country: DE (occurrence: None)
  Receive Date: 20140129
  Receipt Date: 20140129
  Transmission Date: 20141002
  Serious: Yes (Other)
  Sender: FDA-Public Use
  Company Number: 2014-DE-000471

PATIENT
  Age: 19 Year
  Sex: Male

DRUGS (5)
  1. ASPARAGINASE (UNSPECIFIED) (ASPARAGINASE) [Suspect]
     Indication: PERIPHERAL T-CELL LYMPHOMA UNSPECIFIED
  2. DEXAMETHASONE [Concomitant]
  3. METHOTREXATE [Concomitant]
  4. IFOSFAMIDE (IFOSFAMIDE) [Concomitant]
  5. ETOPOSIDE PHOSPHATE [Concomitant]

REACTIONS (1)
  - Hypertriglyceridaemia [None]
